FAERS Safety Report 7274600-8 (Version None)
Quarter: 2011Q1

REPORT INFORMATION
  Report Type: 
  Country: None (occurrence: None)
  Receive Date: 20110204
  Receipt Date: 20110124
  Transmission Date: 20110831
  Serious: Yes (Other)
  Sender: FDA-Public Use
  Company Number: ES-JNJFOC-20110107161

PATIENT
  Age: 46 Year
  Sex: Female

DRUGS (3)
  1. REMICADE [Suspect]
     Route: 042
  2. REMICADE [Suspect]
     Indication: GUTTATE PSORIASIS
     Route: 042
  3. REMICADE [Suspect]
     Route: 042

REACTIONS (4)
  - GUTTATE PSORIASIS [None]
  - PSORIATIC ARTHROPATHY [None]
  - PHARYNGITIS [None]
  - TONSILLITIS [None]
